FAERS Safety Report 12010576 (Version 1)
Quarter: 2016Q1

REPORT INFORMATION
  Report Type: Spontaneous
  Country: ES (occurrence: ES)
  Receive Date: 20160205
  Receipt Date: 20160205
  Transmission Date: 20160526
  Serious: Yes (Other)
  Sender: FDA-Public Use
  Company Number: ES-009507513-1602ESP003023

PATIENT
  Age: 23 Month
  Sex: Male
  Weight: 10 kg

DRUGS (1)
  1. SINGULAIR [Suspect]
     Active Substance: MONTELUKAST SODIUM
     Route: 048
     Dates: start: 20150914, end: 20151129

REACTIONS (3)
  - Bruxism [Unknown]
  - Cyanosis [Unknown]
  - Chills [Unknown]

NARRATIVE: CASE EVENT DATE: 201511
